FAERS Safety Report 5559966-9 (Version None)
Quarter: 2007Q4

REPORT INFORMATION
  Report Type: 
  Country: None (occurrence: None)
  Receive Date: 20071214
  Receipt Date: 20071022
  Transmission Date: 20080405
  Serious: No
  Sender: FDA-Public Use
  Company Number: US-ABBOTT-07P-163-0421966-00

PATIENT
  Sex: Female
  Weight: 52.21 kg

DRUGS (1)
  1. HUMIRA [Suspect]
     Indication: POLYMYALGIA RHEUMATICA
     Route: 058
     Dates: start: 20070601, end: 20071001

REACTIONS (3)
  - DRUG INEFFECTIVE [None]
  - PAIN [None]
  - SWELLING [None]
